FAERS Safety Report 13456578 (Version 1)
Quarter: 2017Q2

REPORT INFORMATION
  Report Type: Spontaneous
  Country: US (occurrence: US)
  Receive Date: 20170419
  Receipt Date: 20170419
  Transmission Date: 20170830
  Serious: Yes (Other)
  Sender: FDA-Public Use
  Company Number: None

PATIENT
  Age: 69 Year
  Sex: Male
  Weight: 68.04 kg

DRUGS (7)
  1. CELEDRIN BONE FACTORS CELL STRENGTH [Concomitant]
  2. MULTI-VITAMIN [Concomitant]
     Active Substance: .ALPHA.-TOCOPHEROL ACETATE, DL-\ASCORBIC ACID\CYANOCOBALAMIN\FLUORIDE ION\FOLIC ACID\NIACIN\PYRIDOXINE\RIBOFLAVIN\THIAMINE\VITAMIN A\VITAMIN D
  3. GLUCOSAMINE CHONDROITIN [Concomitant]
     Active Substance: CHONDROITIN SULFATE (BOVINE)\GLUCOSAMINE HYDROCHLORIDE
  4. HERBS [Concomitant]
     Active Substance: HERBALS
  5. BIOPREM [Concomitant]
  6. SMZ-TMP DS TAB SUB FOR: BACTRUM DS TABLET [Suspect]
     Active Substance: SULFAMETHOXAZOLE\TRIMETHOPRIM
     Indication: BURNS SECOND DEGREE
     Dosage: ?          QUANTITY:1?17 157W;;?
     Route: 048
     Dates: start: 20170313, end: 20170331
  7. CURCUMIN [Concomitant]
     Active Substance: CURCUMIN

REACTIONS (3)
  - Electrolyte imbalance [None]
  - Depression [None]
  - Crying [None]

NARRATIVE: CASE EVENT DATE: 20170331
